FAERS Safety Report 7831561-8 (Version None)
Quarter: 2011Q4

REPORT INFORMATION
  Report Type: 
  Country: None (occurrence: None)
  Receive Date: 20111021
  Receipt Date: 20111014
  Transmission Date: 20120403
  Serious: Yes (Death, Life-Threatening, Hospitalization)
  Sender: FDA-Public Use
  Company Number: PT-CELGENEUS-130-C5013-11042330

PATIENT
  Sex: Male
  Weight: 61 kg

DRUGS (11)
  1. LENALIDOMIDE [Suspect]
     Indication: MULTIPLE MYELOMA
     Dosage: 25 MILLIGRAM
     Route: 048
     Dates: start: 20100204
  2. DEXAMETHASONE [Suspect]
     Dosage: 40 MILLIGRAM
     Route: 041
  3. DEXAMETHASONE [Suspect]
     Indication: MULTIPLE MYELOMA
     Dosage: 20 MILLIGRAM
     Route: 041
     Dates: start: 20100204
  4. OMEPRAZOLE [Concomitant]
     Indication: PROPHYLAXIS
     Dosage: 20 MILLIGRAM
     Route: 048
     Dates: start: 20100204
  5. IRBESARTAN AND HYDROCHLOROTHIAZIDE [Concomitant]
     Dosage: 1 TABLET
     Route: 048
     Dates: start: 20110412
  6. ASPIRIN [Concomitant]
     Indication: THROMBOSIS PROPHYLAXIS
     Dosage: 100 MILLIGRAM
     Route: 048
  7. IRBESARTAN [Concomitant]
     Dosage: 12.5 MILLIGRAM
     Route: 048
     Dates: start: 20100112, end: 20110322
  8. LORAZEPAM [Concomitant]
     Indication: ANXIETY
     Dosage: 2.5 MILLIGRAM
     Route: 048
     Dates: start: 20100112
  9. LENALIDOMIDE [Suspect]
     Dosage: 25 MILLIGRAM
     Route: 048
     Dates: start: 20110331, end: 20110411
  10. IRBESARTAN AND HYDROCHLOROTHIAZIDE [Concomitant]
     Dosage: 150 MILLIGRAM
     Route: 048
     Dates: start: 20100112, end: 20110322
  11. DEXAMETHASONE [Suspect]
     Dosage: 20 MILLIGRAM
     Route: 065
     Dates: start: 20110203, end: 20110303

REACTIONS (7)
  - AGITATED DEPRESSION [None]
  - GINGIVAL BLEEDING [None]
  - MULTIPLE MYELOMA [None]
  - BRONCHOPNEUMONIA [None]
  - RENAL FAILURE CHRONIC [None]
  - GENERAL PHYSICAL HEALTH DETERIORATION [None]
  - CONFUSIONAL STATE [None]
